FAERS Safety Report 21785850 (Version 1)
Quarter: 2022Q4

REPORT INFORMATION
  Report Type: Report from Study
  Country: US (occurrence: US)
  Receive Date: 20221227
  Receipt Date: 20221227
  Transmission Date: 20230113
  Serious: No
  Sender: FDA-Public Use
  Company Number: US-drreddys-SPO/USA/22/0157966

PATIENT
  Age: 62 Year
  Sex: Female

DRUGS (14)
  1. SAPROPTERIN DIHYDROCHLORIDE [Suspect]
     Active Substance: SAPROPTERIN DIHYDROCHLORIDE
     Indication: Amino acid level increased
     Route: 048
     Dates: start: 20221117
  2. RISPERIDONE [Concomitant]
     Active Substance: RISPERIDONE
     Indication: Product used for unknown indication
     Route: 048
  3. RISPERIDONE [Concomitant]
     Active Substance: RISPERIDONE
     Route: 048
  4. DIVALPROEX SODIUM [Concomitant]
     Active Substance: DIVALPROEX SODIUM
     Indication: Product used for unknown indication
     Dosage: TAKE ONE TABLET BY MOUTH EVERY MORNING AND FOUR TABLETS BY MOUTH AT BEDTIME
     Route: 048
  5. DIVALPROEX SODIUM [Concomitant]
     Active Substance: DIVALPROEX SODIUM
     Dosage: TAKE ONE TABLET BY MOUTH EVERY MORNING AND FOUR TABLETS BY MOUTH AT BEDTIME
     Route: 048
  6. BENZTROPINE [Concomitant]
     Active Substance: BENZTROPINE
     Indication: Product used for unknown indication
     Route: 048
  7. CALCIUM/D [Concomitant]
     Indication: Product used for unknown indication
     Dosage: 600/400
     Route: 048
  8. CARBIDOPA\LEVODOPA [Concomitant]
     Active Substance: CARBIDOPA\LEVODOPA
     Indication: Product used for unknown indication
     Dosage: 100 MG/25 MG
     Route: 048
  9. DOCUSATE SOD [Concomitant]
     Indication: Constipation
     Route: 048
  10. ENTACAPONE [Concomitant]
     Active Substance: ENTACAPONE
     Indication: Product used for unknown indication
     Dosage: TAKE ONE TABLET BY MOUTH TID IN COMBINATION W/ CARB/LEVO
     Route: 048
  11. GNP [Concomitant]
     Indication: Product used for unknown indication
     Dosage: PLACE 5 DROPS TWICE INTO AFFECTED EARS
     Route: 001
  12. LEVOTHYROXINE [Concomitant]
     Active Substance: LEVOTHYROXINE
     Indication: Product used for unknown indication
     Dosage: TAKE ONE TABLET BY MOUTH EVERYDAY
     Route: 048
  13. LINZESS [Concomitant]
     Active Substance: LINACLOTIDE
     Indication: Product used for unknown indication
     Dosage: TAKE ONE CAPSULE BY MOUTH DAILY ON AN EMPTY STOMACH AT LEAST 30 MINS PRIOR TO 1ST MEAL OF THE DAY
     Route: 048
  14. LORAZEPAM [Concomitant]
     Active Substance: LORAZEPAM
     Indication: Product used for unknown indication
     Dosage: TAKE ONE CAPSULE BY MOUTH DAILY ON AN EMPTY STOMACH AT LEAST 30 MINS PRIOR TO 1ST MEAL OF THE DAY
     Route: 048

REACTIONS (6)
  - Tremor [Not Recovered/Not Resolved]
  - Dysarthria [Not Recovered/Not Resolved]
  - Crying [Not Recovered/Not Resolved]
  - Insomnia [Not Recovered/Not Resolved]
  - Confusional state [Not Recovered/Not Resolved]
  - Abnormal behaviour [Not Recovered/Not Resolved]

NARRATIVE: CASE EVENT DATE: 20221123
